FAERS Safety Report 8822727 (Version 2)
Quarter: 2015Q3

REPORT INFORMATION
  Report Type: Report from Study
  Country: US (occurrence: US)
  Receive Date: 20121003
  Receipt Date: 20150929
  Transmission Date: 20151125
  Serious: Yes (Death)
  Sender: FDA-Public Use
  Company Number: US-ROCHE-1129918

PATIENT
  Sex: Female

DRUGS (6)
  1. RITUXAN [Suspect]
     Active Substance: RITUXIMAB
     Indication: RICHTER^S SYNDROME
  2. RITUXAN [Suspect]
     Active Substance: RITUXIMAB
     Indication: DIFFUSE LARGE B-CELL LYMPHOMA
  3. DOXORUBICIN [Concomitant]
     Active Substance: DOXORUBICIN
  4. RITUXAN [Suspect]
     Active Substance: RITUXIMAB
     Indication: CHRONIC LYMPHOCYTIC LEUKAEMIA
     Dosage: RECEIVED ON 04/JAN/2001, 08/JAN/2001, 08/FEB/2001 AND 15/FEB/2001,
     Route: 042
  5. NEUPOGEN [Suspect]
     Active Substance: FILGRASTIM
     Indication: BONE MARROW FAILURE
     Route: 065
  6. PREDNISONE. [Concomitant]
     Active Substance: PREDNISONE

REACTIONS (5)
  - Depression [Unknown]
  - Death [Fatal]
  - Skin lesion [Unknown]
  - Weight decreased [Unknown]
  - Asthenia [Unknown]
